FAERS Safety Report 11699510 (Version 1)
Quarter: 2015Q4

REPORT INFORMATION
  Report Type: Spontaneous
  Country: US (occurrence: US)
  Receive Date: 20151105
  Receipt Date: 20151105
  Transmission Date: 20160304
  Serious: Yes (Hospitalization)
  Sender: FDA-Public Use
  Company Number: US-UCBSA-2015035222

PATIENT
  Age: 53 Year
  Sex: Female

DRUGS (1)
  1. KEPPRA XR [Suspect]
     Active Substance: LEVETIRACETAM
     Indication: SEIZURE
     Dosage: 3000 MG DAILY (500 MG 6/DAY)

REACTIONS (1)
  - Colon operation [Unknown]

NARRATIVE: CASE EVENT DATE: 201509
